FAERS Safety Report 10380315 (Version 1)
Quarter: 2014Q1

REPORT INFORMATION
  Report Type: Spontaneous
  Country: US (occurrence: None)
  Receive Date: 20140306
  Receipt Date: 20140306
  Transmission Date: 20141002
  Serious: Yes (Other)
  Sender: FDA-Public Use
  Company Number: 163-21880-13102687

PATIENT
  Age: 80 Year
  Sex: Female

DRUGS (1)
  1. REVLIMID (LENALIDOMIDE) (5 MILLIGRAM, CAPSULES) [Suspect]
     Indication: MYELODYSPLASTIC SYNDROME
     Dosage: 5MG 28 IN 28 D, PO
     Route: 048
     Dates: start: 20130919

REACTIONS (4)
  - Swollen tongue [None]
  - Pruritus generalised [None]
  - Headache [None]
  - Local swelling [None]
